FAERS Safety Report 6187795-4 (Version None)
Quarter: 2009Q2

REPORT INFORMATION
  Report Type: 
  Country: None (occurrence: None)
  Receive Date: 20090511
  Receipt Date: 20090511
  Transmission Date: 20091009
  Serious: Yes (Hospitalization)
  Sender: FDA-Public Use
  Company Number: None

PATIENT
  Age: 75 Year
  Sex: Male
  Weight: 86.1834 kg

DRUGS (1)
  1. HYDROXYUREA [Suspect]
     Indication: THROMBOCYTHAEMIA
     Dosage: BID
     Dates: start: 20081201, end: 20090201

REACTIONS (13)
  - APPENDICECTOMY [None]
  - ASTHENIA [None]
  - BODY TEMPERATURE INCREASED [None]
  - CHILLS [None]
  - CHOLECYSTECTOMY [None]
  - HAEMOGLOBIN DECREASED [None]
  - MALAISE [None]
  - PAIN [None]
  - PALLOR [None]
  - PYREXIA [None]
  - RESPIRATORY DISTRESS [None]
  - STRESS [None]
  - ULCER HAEMORRHAGE [None]
